FAERS Safety Report 26104219 (Version 1)
Quarter: 2025Q4

REPORT INFORMATION
  Report Type: Spontaneous
  Country: CA (occurrence: CA)
  Receive Date: 20251130
  Receipt Date: 20251130
  Transmission Date: 20260117
  Serious: Yes (Other)
  Sender: JOHNSON AND JOHNSON
  Company Number: CA-JNJFOC-20251175717

PATIENT
  Age: 27 Year
  Sex: Male

DRUGS (2)
  1. STELARA [Suspect]
     Active Substance: USTEKINUMAB
     Indication: Crohn^s disease
     Route: 058
  2. STELARA [Suspect]
     Active Substance: USTEKINUMAB
     Route: 058

REACTIONS (5)
  - Chest discomfort [Recovered/Resolved]
  - Insomnia [Recovered/Resolved]
  - Palpitations [Recovered/Resolved]
  - Arthralgia [Recovered/Resolved]
  - Intentional product use issue [Unknown]
